FAERS Safety Report 15241409 (Version 1)
Quarter: 2018Q3

REPORT INFORMATION
  Report Type: Spontaneous
  Country: US (occurrence: US)
  Receive Date: 20180711
  Receipt Date: 20180711
  Transmission Date: 20181010
  Serious: Yes (Life-Threatening)
  Sender: FDA-Public Use
  Company Number: None

PATIENT
  Age: 15 Year
  Sex: Male
  Weight: 57.2 kg

DRUGS (1)
  1. KYMRIAH [Suspect]
     Active Substance: TISAGENLECLEUCEL
     Indication: B-CELL LYMPHOMA RECURRENT
     Route: 041
     Dates: start: 20180629, end: 20180629

REACTIONS (8)
  - Neurotoxicity [None]
  - Apnoea [None]
  - Candida infection [None]
  - Seizure [None]
  - Pyrexia [None]
  - Somnolence [None]
  - Hypoxia [None]
  - Hypotension [None]

NARRATIVE: CASE EVENT DATE: 20180710
